FAERS Safety Report 11980897 (Version 2)
Quarter: 2016Q1

REPORT INFORMATION
  Report Type: Spontaneous
  Country: US (occurrence: US)
  Receive Date: 20160129
  Receipt Date: 20160203
  Transmission Date: 20160526
  Serious: Yes (Hospitalization, Disabling, Other)
  Sender: FDA-Public Use
  Company Number: US-GLAXOSMITHKLINE-US2016GSK012462

PATIENT
  Age: 16 Year
  Sex: Male

DRUGS (2)
  1. LAMOTRIGINE. [Suspect]
     Active Substance: LAMOTRIGINE
     Dosage: UNK
  2. LAMOTRIGINE. [Suspect]
     Active Substance: LAMOTRIGINE
     Indication: SEIZURE
     Dosage: UNK

REACTIONS (26)
  - Dizziness [Unknown]
  - Gastrointestinal disorder [Unknown]
  - Chorioretinopathy [Recovered/Resolved]
  - Photophobia [Unknown]
  - Iridocyclitis [Unknown]
  - Deafness neurosensory [Unknown]
  - Tubulointerstitial nephritis [Unknown]
  - Sudden visual loss [Unknown]
  - Cogan^s syndrome [Unknown]
  - Retinal artery occlusion [Unknown]
  - Eosinophil count increased [Unknown]
  - Swelling face [Unknown]
  - Eye pain [Unknown]
  - Vomiting [Unknown]
  - Nephritis [Unknown]
  - Rash [Unknown]
  - Weight decreased [Unknown]
  - Confusional state [Unknown]
  - Ocular hypertension [Unknown]
  - Blood creatinine increased [Unknown]
  - Headache [Unknown]
  - Treatment noncompliance [Unknown]
  - Back pain [Unknown]
  - Beta 2 microglobulin urine increased [Unknown]
  - Vision blurred [Unknown]
  - Nausea [Unknown]
